FAERS Safety Report 17109871 (Version 2)
Quarter: 2020Q1

REPORT INFORMATION
  Report Type: Spontaneous
  Country: US (occurrence: US)
  Receive Date: 20191204
  Receipt Date: 20200101
  Transmission Date: 20200409
  Serious: Yes (Death)
  Sender: FDA-Public Use
  Company Number: US-ROCHE-2486041

PATIENT
  Age: 87 Year
  Sex: Female

DRUGS (1)
  1. ERIVEDGE [Suspect]
     Active Substance: VISMODEGIB
     Indication: BASAL CELL CARCINOMA
     Dosage: ONGOING: UNKNOWN
     Route: 048
     Dates: start: 20171222

REACTIONS (1)
  - Death [Fatal]

NARRATIVE: CASE EVENT DATE: 20191122
